FAERS Safety Report 4542295-X (Version None)
Quarter: 2004Q4

REPORT INFORMATION
  Report Type: 
  Country: None (occurrence: None)
  Receive Date: 20041227
  Receipt Date: 20041221
  Transmission Date: 20050328
  Serious: Yes (Hospitalization)
  Sender: FDA-Public Use
  Company Number: US-GDP-0411585

PATIENT
  Age: 27 Year
  Sex: Female
  Weight: 58.0604 kg

DRUGS (6)
  1. DIFFERIN [Suspect]
     Indication: ACNE
     Dosage: 1 APP QD TP
     Dates: start: 20040927, end: 20041017
  2. WELLBUTRIN [Suspect]
     Indication: BLOOD OESTROGEN DECREASED
     Dosage: 150 MG QD PO
     Route: 048
     Dates: start: 20040930, end: 20041014
  3. WELLBUTRIN [Suspect]
     Indication: EMOTIONAL DISTRESS
     Dosage: 150 MG QD PO
     Route: 048
     Dates: start: 20040930, end: 20041014
  4. WELLBUTRIN [Suspect]
     Indication: BLOOD OESTROGEN DECREASED
     Dosage: 300 MG QD PO
     Route: 048
     Dates: start: 20041015, end: 20041016
  5. WELLBUTRIN [Suspect]
     Indication: EMOTIONAL DISTRESS
     Dosage: 300 MG QD PO
     Route: 048
     Dates: start: 20041015, end: 20041016
  6. NUVARING [Concomitant]

REACTIONS (9)
  - ABDOMINAL PAIN [None]
  - ANAPHYLACTIC REACTION [None]
  - BLOOD OESTROGEN DECREASED [None]
  - DRUG HYPERSENSITIVITY [None]
  - DYSTHYMIC DISORDER [None]
  - EMOTIONAL DISTRESS [None]
  - EYE IRRITATION [None]
  - GASTROOESOPHAGEAL REFLUX DISEASE [None]
  - NAUSEA [None]
